FAERS Safety Report 10171178 (Version 1)
Quarter: 2014Q2

REPORT INFORMATION
  Report Type: Spontaneous
  Country: US (occurrence: US)
  Receive Date: 20140514
  Receipt Date: 20140514
  Transmission Date: 20141212
  Serious: Yes (Hospitalization)
  Sender: FDA-Public Use
  Company Number: US-JNJFOC-20140505743

PATIENT
  Age: 74 Year
  Sex: Female

DRUGS (3)
  1. REMICADE [Suspect]
     Indication: RHEUMATOID ARTHRITIS
     Route: 042
  2. METHOTREXATE [Concomitant]
     Route: 065
  3. PREDNISONE [Concomitant]
     Route: 065

REACTIONS (3)
  - Investigation [Unknown]
  - Rheumatoid arthritis [Unknown]
  - General physical condition abnormal [Unknown]
